FAERS Safety Report 6106774-6 (Version None)
Quarter: 2009Q1

REPORT INFORMATION
  Report Type: 
  Country: None (occurrence: None)
  Receive Date: 20090304
  Receipt Date: 20090224
  Transmission Date: 20090719
  Serious: Yes (Hospitalization, Other)
  Sender: FDA-Public Use
  Company Number: WAES 0811USA03439

PATIENT
  Age: 72 Year
  Sex: Female

DRUGS (10)
  1. VYTORIN [Suspect]
     Indication: ACUTE CORONARY SYNDROME
     Dosage: 10-40 MG/DAILY PO
     Route: 048
     Dates: start: 20061102
  2. TAB PLACEBO (UNSPECIFIED) [Suspect]
     Indication: ACUTE CORONARY SYNDROME
     Dosage: PO
     Route: 048
     Dates: start: 20061102
  3. ATACAND [Concomitant]
  4. DUROFERON [Concomitant]
  5. ESIDRIX [Concomitant]
  6. LEVOTHYROXINE SODIUM [Concomitant]
  7. ACETAMINOPHEN [Concomitant]
  8. TROMBYL [Concomitant]
  9. AMLODIPINE BESYLATE [Concomitant]
  10. ENALAPRIL MALEATE [Concomitant]

REACTIONS (4)
  - ANAEMIA [None]
  - COLON CANCER [None]
  - METASTASES TO LIVER [None]
  - PYREXIA [None]
